FAERS Safety Report 8035176 (Version 4)
Quarter: 2013Q2

REPORT INFORMATION
  Report Type: Report from Study
  Country: KR (occurrence: KR)
  Receive Date: 20110714
  Receipt Date: 20130522
  Transmission Date: 20140414
  Serious: Yes (Hospitalization)
  Sender: FDA-Public Use
  Company Number: KR-ELI_LILLY_AND_COMPANY-KR201107000173

PATIENT
  Age: 72 Year
  Sex: Male
  Weight: 64 kg

DRUGS (5)
  1. NECITUMUMAB (11F8) (LY3012211) [Suspect]
     Indication: NON-SMALL CELL LUNG CANCER STAGE IV
     Dosage: 800 MG, OTHER
     Dates: start: 20110617
  2. GEMCITABINE HYDROCHLORIDE [Suspect]
     Indication: NON-SMALL CELL LUNG CANCER STAGE IV
     Dosage: 2125 MG, OTHER
     Dates: start: 20110617
  3. CISPLATIN [Suspect]
     Indication: NON-SMALL CELL LUNG CANCER STAGE IV
     Dosage: 127.5 MG, UNK
     Dates: start: 20110617
  4. COUGH SYRUP [Concomitant]
  5. CODEINE PHOSPHATE [Concomitant]

REACTIONS (1)
  - Haemoptysis [Recovered/Resolved]
